FAERS Safety Report 4345825-6 (Version None)
Quarter: 2004Q2

REPORT INFORMATION
  Report Type: 
  Country: None (occurrence: None)
  Receive Date: 20040424
  Receipt Date: 20031028
  Transmission Date: 20050107
  Serious: Yes (Hospitalization)
  Sender: FDA-Public Use
  Company Number: US-MERCK-0310USA03186

PATIENT
  Sex: Male

DRUGS (1)
  1. ZETIA [Suspect]
     Route: 048

REACTIONS (2)
  - CHOLELITHIASIS [None]
  - HEPATIC FAILURE [None]
